FAERS Safety Report 9843985 (Version 1)
Quarter: 2013Q4

REPORT INFORMATION
  Report Type: Spontaneous
  Country: US (occurrence: None)
  Receive Date: 20131223
  Receipt Date: 20131223
  Transmission Date: 20140711
  Serious: No
  Sender: FDA-Public Use
  Company Number: 1000050565

PATIENT
  Age: 80 Year
  Sex: Female

DRUGS (2)
  1. LINZESS (LINACLOTIDE) (145 MICROGRAM, CAPSULES) [Suspect]
     Indication: CONSTIPATION
     Dosage: 145 MCG, 1 IN 1 D, ORAL
     Route: 048
     Dates: start: 20131025
  2. CITRUCEL (METHYLCELLULOSE) (METHYLCELLULOSE) [Concomitant]

REACTIONS (2)
  - Diarrhoea [None]
  - Chills [None]
